FAERS Safety Report 8188333-7 (Version None)
Quarter: 2012Q1

REPORT INFORMATION
  Report Type: 
  Country: None (occurrence: None)
  Receive Date: 20120306
  Receipt Date: 20120301
  Transmission Date: 20120608
  Serious: No
  Sender: FDA-Public Use
  Company Number: US-JNJFOC-20120204647

PATIENT
  Sex: Male
  Weight: 77.11 kg

DRUGS (11)
  1. VITAMIN D [Concomitant]
     Indication: NUTRITIONAL SUPPORT
     Route: 048
     Dates: start: 20100101
  2. FENTANYL-100 [Suspect]
     Indication: PRODUCT USED FOR UNKNOWN INDICATION
     Route: 062
     Dates: start: 20100101, end: 20100101
  3. OXYCODONE HCL [Concomitant]
     Indication: PAIN
     Route: 048
     Dates: start: 20040101
  4. WATER [Concomitant]
     Indication: FLUID RETENTION
     Route: 048
  5. VITAMIN B COMPLEX CAP [Concomitant]
     Indication: NERVE INJURY
     Route: 048
     Dates: start: 20100101
  6. OXYCODONE HCL [Concomitant]
     Route: 048
  7. OXYCODONE HCL [Concomitant]
     Route: 048
     Dates: start: 20110101
  8. FENTANYL-100 [Suspect]
     Indication: NERVE DEGENERATION
     Route: 062
     Dates: start: 20110101
  9. FENTANYL-100 [Suspect]
     Route: 062
     Dates: start: 20100101, end: 20110101
  10. THYROID [Concomitant]
     Indication: THYROID DISORDER
     Route: 048
  11. ASCORBIC ACID [Concomitant]
     Indication: NUTRITIONAL SUPPORT
     Route: 048
     Dates: start: 20100101

REACTIONS (8)
  - WRONG TECHNIQUE IN DRUG USAGE PROCESS [None]
  - ANALGESIC DRUG LEVEL INCREASED [None]
  - DRUG EFFECT DECREASED [None]
  - DRUG ADMINISTERED AT INAPPROPRIATE SITE [None]
  - PRODUCT ADHESION ISSUE [None]
  - THERAPEUTIC RESPONSE DECREASED [None]
  - APPLICATION SITE DISCOLOURATION [None]
  - INCORRECT DRUG ADMINISTRATION DURATION [None]
